FAERS Safety Report 26182535 (Version 1)
Quarter: 2025Q4

REPORT INFORMATION
  Report Type: Spontaneous
  Country: US (occurrence: US)
  Receive Date: 20251221
  Receipt Date: 20251221
  Transmission Date: 20260118
  Serious: No
  Sender: AUROBINDO
  Company Number: US-AUROBINDO-AUR-APL-2025-048398

PATIENT
  Sex: Male

DRUGS (1)
  1. EQUATE 8HR ARTHRITIS PAIN RELIEF [Suspect]
     Active Substance: ACETAMINOPHEN
     Indication: Pain
     Dosage: 2 IN THE MORING AND 2 AT NIGHT
     Route: 065

REACTIONS (1)
  - Blood pressure decreased [Unknown]
